FAERS Safety Report 24219052 (Version 1)
Quarter: 2024Q3

REPORT INFORMATION
  Report Type: Spontaneous
  Country: IT (occurrence: IT)
  Receive Date: 20240816
  Receipt Date: 20240816
  Transmission Date: 20241017
  Serious: Yes (Death, Other)
  Sender: MERCK
  Company Number: IT-009507513-2408ITA003422

PATIENT
  Sex: Male

DRUGS (1)
  1. CEFTOLOZANE SULFATE\TAZOBACTAM SODIUM [Suspect]
     Active Substance: CEFTOLOZANE SULFATE\TAZOBACTAM SODIUM
     Indication: Pneumonia
     Dosage: 3 G, ONE DOSE, CONTINUOUS INFUSION

REACTIONS (2)
  - Pulmonary embolism [Fatal]
  - Off label use [Unknown]
